FAERS Safety Report 4709060-1 (Version None)
Quarter: 2005Q3

REPORT INFORMATION
  Report Type: 
  Country: None (occurrence: None)
  Receive Date: 20050707
  Receipt Date: 20050628
  Transmission Date: 20060218
  Serious: Yes (Other)
  Sender: FDA-Public Use
  Company Number: AZAUS200500206

PATIENT
  Age: 77 Year
  Sex: Female
  Weight: 83.9154 kg

DRUGS (7)
  1. VIDAZA [Suspect]
     Indication: ACUTE MYELOID LEUKAEMIA
     Dosage: 75 MG/M2 (142 MG, DAILY X 5 DAYS) SUBCUTANEOUS
     Route: 058
     Dates: start: 20050620, end: 20050622
  2. THALOMID [Suspect]
     Indication: ACUTE MYELOID LEUKAEMIA
     Dosage: 50 MG/DAY DAYS 1-8; 100 MG/DAY BEGINNING ON DAY 9; DECREASED TO 50 MG/DAY ON DAY 27 AND HELD SINCE D
     Route: 048
     Dates: start: 20050523, end: 20050620
  3. DIGOXIN [Concomitant]
  4. LEVOTHYROXINE SODIUM [Concomitant]
  5. CELEBREX [Concomitant]
  6. UNIRETIC        (PRIMOX PLUS) [Concomitant]
  7. FLOVENT (FLUTICASONE PRIOPIONATE) [Concomitant]

REACTIONS (6)
  - ABDOMINAL PAIN [None]
  - DEEP VEIN THROMBOSIS [None]
  - DIARRHOEA [None]
  - FEBRILE NEUTROPENIA [None]
  - GIARDIASIS [None]
  - MUSCLE SPASMS [None]
